FAERS Safety Report 6706443-5 (Version None)
Quarter: 2010Q2

REPORT INFORMATION
  Report Type: 
  Country: None (occurrence: None)
  Receive Date: 20100503
  Receipt Date: 20100422
  Transmission Date: 20101027
  Serious: Yes (Other)
  Sender: FDA-Public Use
  Company Number: US-PFIZER INC-2010016409

PATIENT
  Sex: Female
  Weight: 74.83 kg

DRUGS (6)
  1. LIPITOR [Suspect]
     Indication: HYPERCHOLESTEROLAEMIA
     Dosage: 20 MG, 1X/DAY
     Route: 048
     Dates: start: 20000101
  2. SYNTHROID [Concomitant]
     Indication: HYPOTHYROIDISM
     Dosage: UNK
  3. DIOVAN [Concomitant]
     Indication: HYPERTENSION
  4. PREMARIN [Concomitant]
     Indication: MENOPAUSE
  5. TOPROL-XL [Concomitant]
     Indication: HYPERTENSION
  6. METOPROLOL TARTRATE [Concomitant]
     Indication: HYPERTENSION

REACTIONS (1)
  - COELIAC DISEASE [None]
